FAERS Safety Report 9787191 (Version 1)
Quarter: 2013Q4

REPORT INFORMATION
  Report Type: Spontaneous
  Country: FR (occurrence: FR)
  Receive Date: 20131229
  Receipt Date: 20131229
  Transmission Date: 20140711
  Serious: Yes (Other)
  Sender: FDA-Public Use
  Company Number: FR-CELGENEUS-056-50794-13123157

PATIENT
  Age: 81 Year
  Sex: Female
  Weight: 54 kg

DRUGS (3)
  1. VIDAZA [Suspect]
     Indication: ACUTE MYELOID LEUKAEMIA
     Dosage: 70 MILLIGRAM/SQ. METER
     Route: 058
     Dates: start: 20131121, end: 20131121
  2. VIDAZA [Suspect]
     Route: 058
     Dates: start: 201304
  3. VIDAZA [Suspect]
     Route: 058

REACTIONS (1)
  - Accidental overdose [Recovered/Resolved]
